FAERS Safety Report 12353083 (Version 3)
Quarter: 2016Q2

REPORT INFORMATION
  Report Type: Report from Study
  Country: US (occurrence: US)
  Receive Date: 20160510
  Receipt Date: 20160609
  Transmission Date: 20160815
  Serious: Yes (Other)
  Sender: FDA-Public Use
  Company Number: US-009507513-1605USA004313

PATIENT
  Sex: Female

DRUGS (3)
  1. JANUMET [Suspect]
     Active Substance: METFORMIN HYDROCHLORIDE\SITAGLIPTIN PHOSPHATE
     Dosage: UNK
     Route: 048
  2. JANUVIA [Suspect]
     Active Substance: SITAGLIPTIN PHOSPHATE
     Dosage: UNK
     Route: 048
  3. NOVOLOG [Concomitant]
     Active Substance: INSULIN ASPART
     Dosage: UNK

REACTIONS (9)
  - Colon cancer [Recovered/Resolved]
  - Blood glucose abnormal [Unknown]
  - Blood pressure abnormal [Unknown]
  - Cervix carcinoma [Recovered/Resolved]
  - Hair texture abnormal [Unknown]
  - Drug hypersensitivity [Unknown]
  - Fatigue [Unknown]
  - Throat tightness [Unknown]
  - Dry skin [Unknown]

NARRATIVE: CASE EVENT DATE: 2007
